FAERS Safety Report 24277377 (Version 2)
Quarter: 2024Q4

REPORT INFORMATION
  Report Type: Spontaneous
  Country: GB (occurrence: GB)
  Receive Date: 20240903
  Receipt Date: 20241021
  Transmission Date: 20250115
  Serious: Yes (Other)
  Sender: MYLAN
  Company Number: GB-MYLANLABS-2024M1079651

PATIENT
  Age: 67 Year
  Sex: Male
  Weight: 69.4 kg

DRUGS (9)
  1. CLOZARIL [Suspect]
     Active Substance: CLOZAPINE
     Indication: Schizophrenia
     Dosage: UNK UNK, BID (100 MG MORNING, 500 MG NIGHT)
     Route: 048
     Dates: start: 20120823
  2. SIMVASTATIN [Suspect]
     Active Substance: SIMVASTATIN
     Indication: Hyperlipidaemia
     Dosage: 40 MILLIGRAM, QD (ONCE DAILY)
     Route: 048
     Dates: start: 20220617
  3. AMILORIDE [Suspect]
     Active Substance: AMILORIDE
     Indication: Nephrogenic diabetes insipidus
     Dosage: 5 MILLIGRAM, QD (ONCE DAILY)
     Route: 048
     Dates: start: 20230803
  4. BENDROFLUMETHIAZIDE [Suspect]
     Active Substance: BENDROFLUMETHIAZIDE
     Indication: Nephrogenic diabetes insipidus
     Dosage: 5 MILLIGRAM, QD (ONCE DAILY)
     Route: 048
     Dates: start: 20231023
  5. DIAZEPAM [Suspect]
     Active Substance: DIAZEPAM
     Indication: Agitation
     Dosage: 5 MILLIGRAM, TID (TDS)
     Route: 048
     Dates: start: 20240731
  6. LITHIUM [Concomitant]
     Active Substance: LITHIUM
     Indication: Schizophrenia
     Dosage: 520 MILLIGRAM, BID
     Route: 048
     Dates: start: 20240807
  7. ASPIRIN [Concomitant]
     Active Substance: ASPIRIN
     Dosage: 75 MILLIGRAM, QD (ONCE DAILY)
     Route: 048
     Dates: start: 20211111
  8. VALPROATE SODIUM [Concomitant]
     Active Substance: VALPROATE SODIUM
     Indication: Mood swings
     Dosage: 800 MILLIGRAM, BID
     Route: 048
     Dates: start: 20210716
  9. LEVOTHYROXINE [Concomitant]
     Active Substance: LEVOTHYROXINE
     Indication: Hypothyroidism
     Dosage: 75 MICROGRAM, QD (ONCE DAILY)
     Route: 048
     Dates: start: 20220609

REACTIONS (2)
  - Leukocytosis [Recovered/Resolved]
  - Neutrophilia [Recovered/Resolved]

NARRATIVE: CASE EVENT DATE: 20240826
